FAERS Safety Report 7941167-8 (Version None)
Quarter: 2011Q4

REPORT INFORMATION
  Report Type: 
  Country: None (occurrence: None)
  Receive Date: 20111122
  Receipt Date: 20110902
  Transmission Date: 20120403
  Serious: Yes (Death, Hospitalization, Other)
  Sender: FDA-Public Use
  Company Number: ACO_26471_2011

PATIENT
  Age: 45 Year
  Sex: Male

DRUGS (2)
  1. AMPYRA [Suspect]
     Indication: GAIT DISTURBANCE
     Dosage: 10 MG,
  2. 4-AP (FAMPRIDINE) TABLET, 10MG [Suspect]
     Indication: PRODUCT USED FOR UNKNOWN INDICATION
     Dosage: 10 MG,

REACTIONS (8)
  - AGGRESSION [None]
  - MENTAL STATUS CHANGES [None]
  - OVERDOSE [None]
  - AGITATION [None]
  - HEART RATE INCREASED [None]
  - BLOOD PRESSURE SYSTOLIC INCREASED [None]
  - GRAND MAL CONVULSION [None]
  - NO THERAPEUTIC RESPONSE [None]
